FAERS Safety Report 6323653-X (Version None)
Quarter: 2009Q3

REPORT INFORMATION
  Report Type: 
  Country: None (occurrence: None)
  Receive Date: 20090824
  Receipt Date: 20090610
  Transmission Date: 20100115
  Serious: No
  Sender: FDA-Public Use
  Company Number: US-ABBOTT-09P-163-0578920-00

PATIENT

DRUGS (20)
  1. NIASPAN [Suspect]
     Indication: LOW DENSITY LIPOPROTEIN INCREASED
     Route: 048
     Dates: start: 20090510
  2. UROXATRAL [Concomitant]
     Indication: DRUG USE FOR UNKNOWN INDICATION
  3. ARICEPT [Concomitant]
     Indication: DRUG USE FOR UNKNOWN INDICATION
  4. ASACOL [Concomitant]
     Indication: DRUG USE FOR UNKNOWN INDICATION
  5. CYMBALTA [Concomitant]
     Indication: DRUG USE FOR UNKNOWN INDICATION
  6. WELLBUTRIN [Concomitant]
     Indication: DRUG USE FOR UNKNOWN INDICATION
  7. ALLEGRA [Concomitant]
     Indication: DRUG USE FOR UNKNOWN INDICATION
  8. FLOMAX [Concomitant]
     Indication: DRUG USE FOR UNKNOWN INDICATION
  9. ASTELIN [Concomitant]
     Indication: DRUG USE FOR UNKNOWN INDICATION
     Dosage: NOSE SPRAY
  10. VIT D [Concomitant]
     Indication: DRUG USE FOR UNKNOWN INDICATION
  11. REQUIP [Concomitant]
     Indication: DRUG USE FOR UNKNOWN INDICATION
  12. SYNTHROID [Concomitant]
     Indication: DRUG USE FOR UNKNOWN INDICATION
  13. ASPIRIN [Concomitant]
     Indication: DRUG USE FOR UNKNOWN INDICATION
     Route: 048
  14. TYLENOL (CAPLET) [Concomitant]
     Indication: DRUG USE FOR UNKNOWN INDICATION
  15. FIBER [Concomitant]
     Indication: DRUG USE FOR UNKNOWN INDICATION
  16. LIPITOR [Concomitant]
     Indication: DRUG USE FOR UNKNOWN INDICATION
  17. COQ10 [Concomitant]
     Indication: DRUG USE FOR UNKNOWN INDICATION
  18. ATENOLOL [Concomitant]
     Indication: DRUG USE FOR UNKNOWN INDICATION
  19. DIGOXIN [Concomitant]
     Indication: DRUG USE FOR UNKNOWN INDICATION
  20. CPAP MACHINE [Concomitant]
     Indication: DRUG USE FOR UNKNOWN INDICATION

REACTIONS (1)
  - BLOOD GLUCOSE INCREASED [None]
